FAERS Safety Report 5678902-8 (Version None)
Quarter: 2008Q1

REPORT INFORMATION
  Report Type: 
  Country: None (occurrence: None)
  Receive Date: 20080325
  Receipt Date: 20080313
  Transmission Date: 20080703
  Serious: Yes (Other)
  Sender: FDA-Public Use
  Company Number: US-WYE-H03138108

PATIENT
  Age: 32 Year
  Sex: Female
  Weight: 63.56 kg

DRUGS (2)
  1. ROBITUSSIN DM [Suspect]
     Indication: ANALGESIA
     Dosage: 8 OUNCE BOTTLE DAILY OR PER DAY AND A HALF
     Route: 048
     Dates: start: 20060101
  2. ROBITUSSIN DM [Suspect]
     Indication: SEDATIVE THERAPY

REACTIONS (4)
  - DEPENDENCE [None]
  - DRUG INEFFECTIVE [None]
  - EUPHORIC MOOD [None]
  - OVERDOSE [None]
